FAERS Safety Report 6091390-5 (Version None)
Quarter: 2009Q1

REPORT INFORMATION
  Report Type: 
  Country: None (occurrence: None)
  Receive Date: 20090225
  Receipt Date: 20081202
  Transmission Date: 20090719
  Serious: No
  Sender: FDA-Public Use
  Company Number: A0758726A

PATIENT
  Age: 6 Year
  Sex: Female

DRUGS (2)
  1. VERAMYST [Suspect]
     Route: 045
     Dates: start: 20081001
  2. UNKNOWN [Concomitant]

REACTIONS (1)
  - PAIN [None]
